FAERS Safety Report 8613431-0 (Version None)
Quarter: 2012Q3

REPORT INFORMATION
  Report Type: 
  Country: None (occurrence: None)
  Receive Date: 20120822
  Receipt Date: 20120807
  Transmission Date: 20120928
  Serious: Yes (Hospitalization)
  Sender: FDA-Public Use
  Company Number: US-MERCK-2010SP063934

PATIENT

DRUGS (13)
  1. PEGINTERFERON ALFA-2B [Suspect]
     Indication: HEPATITIS C
     Dosage: 96 MICROGRAM, QW
     Route: 058
     Dates: start: 20100216
  2. LISINOPRIL [Concomitant]
     Indication: HYPERTENSION
     Dosage: 10 MG, QD
     Route: 048
  3. RIBAVIRIN [Suspect]
     Dosage: 600 MG, QD
  4. VIREAD [Concomitant]
     Indication: HIV INFECTION
     Dosage: 1 DF, QD
     Route: 048
  5. RIBAVIRIN [Suspect]
     Dosage: 600 MG, QAM
     Route: 048
     Dates: start: 20100216
  6. RIBAVIRIN [Suspect]
     Dosage: 800 MG, QD
     Dates: start: 20101108
  7. PEGINTERFERON ALFA-2B [Suspect]
     Dosage: 96 MICROGRAM, QW
     Route: 058
     Dates: start: 20100216
  8. REYATAZ [Concomitant]
     Indication: HIV INFECTION
     Dosage: 300MG/100MG, QD
     Route: 048
  9. EPOETIN ALFA [Concomitant]
     Indication: ANAEMIA
     Dosage: 40, QW
     Route: 058
     Dates: start: 20100331
  10. LEXAPRO [Concomitant]
     Indication: DEPRESSION
     Dosage: 10 MG, QD
     Route: 048
  11. BOCEPREVIR [Suspect]
     Indication: HEPATITIS C
     Dosage: 800 MG, Q8H
     Route: 048
     Dates: start: 20100316
  12. RIBAVIRIN [Suspect]
     Indication: HEPATITIS C
     Dosage: 600 MG, QAM
     Route: 048
     Dates: start: 20100216
  13. RIBAVIRIN [Suspect]
     Dosage: 1000 MG, QD
     Dates: start: 20101111

REACTIONS (1)
  - SYNCOPE [None]
